FAERS Safety Report 9293331 (Version 1)
Quarter: 2013Q2

REPORT INFORMATION
  Report Type: Report from Study
  Country: TW (occurrence: TW)
  Receive Date: 20130516
  Receipt Date: 20130516
  Transmission Date: 20140414
  Serious: Yes (Death, Hospitalization)
  Sender: FDA-Public Use
  Company Number: PHHY2010TW69729

PATIENT
  Age: 75 Year
  Sex: Male
  Weight: 50 kg

DRUGS (1)
  1. ICL670A [Suspect]
     Indication: IRON OVERLOAD

REACTIONS (7)
  - Death [Fatal]
  - Febrile neutropenia [Not Recovered/Not Resolved]
  - Pyrexia [Not Recovered/Not Resolved]
  - Neutropenia [Not Recovered/Not Resolved]
  - Sputum abnormal [Not Recovered/Not Resolved]
  - Productive cough [Not Recovered/Not Resolved]
  - Dysuria [Not Recovered/Not Resolved]
